FAERS Safety Report 4587143-7 (Version None)
Quarter: 2005Q1

REPORT INFORMATION
  Report Type: 
  Country: None (occurrence: None)
  Receive Date: 20050218
  Receipt Date: 20050208
  Transmission Date: 20050727
  Serious: Yes (Hospitalization, Other)
  Sender: FDA-Public Use
  Company Number: JP-JNJFOC-20050104765

PATIENT
  Age: 64 Year
  Sex: Male

DRUGS (5)
  1. OFLOXACIN [Suspect]
     Indication: ENTERITIS
     Route: 049
     Dates: start: 20040513, end: 20040516
  2. ALLOPURINOL [Concomitant]
     Route: 049
  3. UNKNOWN DRUG [Concomitant]
  4. NEXIUM [Concomitant]
     Indication: REFLUX OESOPHAGITIS
     Route: 049
  5. SOLUDECORTIN [Concomitant]
     Route: 030
     Dates: start: 20040423, end: 20040423

REACTIONS (2)
  - TENDON RUPTURE [None]
  - TENDONITIS [None]
